FAERS Safety Report 25727765 (Version 1)
Quarter: 2025Q3

REPORT INFORMATION
  Report Type: Spontaneous
  Country: US (occurrence: None)
  Receive Date: 20250825
  Receipt Date: 20250825
  Transmission Date: 20251021
  Serious: Yes (Hospitalization)
  Sender: FDA-CTU
  Company Number: None

PATIENT
  Sex: Female

DRUGS (1)
  1. LUMASON [Suspect]
     Active Substance: SULFUR HEXAFLUORIDE

REACTIONS (10)
  - Contrast media reaction [None]
  - Anaphylactic reaction [None]
  - Seizure [None]
  - Cardiac arrest [None]
  - Mental status changes [None]
  - Paraesthesia oral [None]
  - Swollen tongue [None]
  - Dyskinesia [None]
  - Blood pressure decreased [None]
  - Paraesthesia [None]

NARRATIVE: CASE EVENT DATE: 20231010
